FAERS Safety Report 5961669 (Version 4)
Quarter: 2015Q4

REPORT INFORMATION
  Report Type: Report from Study
  Country: US (occurrence: US)
  Receive Date: 20060117
  Receipt Date: 20151127
  Transmission Date: 20160305
  Serious: Yes (Congenital Anomaly, Other)
  Sender: FDA-Public Use
  Company Number: US-BRISTOL-MYERS SQUIBB COMPANY-13238167

PATIENT
  Age: 0 Day
  Sex: Male

DRUGS (4)
  1. ATAZANAVIR SULFATE [Suspect]
     Active Substance: ATAZANAVIR SULFATE
     Indication: PRODUCT USED FOR UNKNOWN INDICATION
     Dosage: 300 MG, QD
     Route: 064
     Dates: start: 20041210, end: 20050515
  2. TRUVADA [Concomitant]
     Active Substance: EMTRICITABINE\TENOFOVIR DISOPROXIL FUMARATE
     Indication: PRODUCT USED FOR UNKNOWN INDICATION
     Dosage: 500 MG, QD
     Route: 064
     Dates: start: 20041210
  3. NORVIR [Concomitant]
     Active Substance: RITONAVIR
     Indication: PRODUCT USED FOR UNKNOWN INDICATION
     Dosage: 5 TO 27 WEEKS
     Route: 064
     Dates: start: 20041210, end: 20050515
  4. KALETRA [Concomitant]
     Active Substance: LOPINAVIR\RITONAVIR
     Indication: PRODUCT USED FOR UNKNOWN INDICATION
     Dosage: 1000 MG, QD
     Route: 064
     Dates: start: 20050515

REACTIONS (10)
  - Pulmonary artery atresia [Unknown]
  - DiGeorge^s syndrome [Unknown]
  - Nephrocalcinosis [Unknown]
  - Chromosomal deletion [Unknown]
  - Foetal exposure during pregnancy [Recovered/Resolved]
  - Cleft palate [Unknown]
  - Fallot^s tetralogy [Unknown]
  - Premature baby [Unknown]
  - Oesophageal motility disorder [Unknown]
  - Renal hypoplasia [Unknown]

NARRATIVE: CASE EVENT DATE: 20050712
